FAERS Safety Report 25572656 (Version 5)
Quarter: 2025Q4

REPORT INFORMATION
  Report Type: Report from Study
  Country: US (occurrence: US)
  Receive Date: 20250717
  Receipt Date: 20251006
  Transmission Date: 20260118
  Serious: No
  Sender: AGIOS PHARMACEUTICALS
  Company Number: US-AGIOS-2507US04351

PATIENT
  Age: 5 Year
  Sex: Male
  Weight: 17 kg

DRUGS (4)
  1. MITAPIVAT [Suspect]
     Active Substance: MITAPIVAT
     Indication: Pyruvate kinase deficiency anaemia
     Dosage: 15 MILLIGRAM, BID
     Route: 048
     Dates: start: 20250609
  2. FOLIC ACID [Concomitant]
     Active Substance: FOLIC ACID
     Indication: Pyruvate kinase deficiency anaemia
     Dosage: 1 MILLIGRAM, QD
     Route: 048
     Dates: start: 20250411
  3. HUMAN RED BLOOD CELL [Concomitant]
     Active Substance: HUMAN RED BLOOD CELL
     Indication: Pyruvate kinase deficiency anaemia
     Dosage: 160 MILLILITER, Q4WEEKS
     Route: 042
     Dates: start: 202501
  4. FIBER THERAPY (CALCIUM POLYCARBOPHIL) [Concomitant]
     Active Substance: CALCIUM POLYCARBOPHIL
     Indication: Bowel movement irregularity
     Dosage: 3 GRAM, QD, GMMY BEARS
     Route: 048
     Dates: start: 202504

REACTIONS (4)
  - Hot flush [Recovered/Resolved]
  - Rash [Recovered/Resolved]
  - Arthropod bite [Recovered/Resolved]
  - Blast cells [Not Recovered/Not Resolved]

NARRATIVE: CASE EVENT DATE: 20250618
